FAERS Safety Report 9330864 (Version 1)
Quarter: 2013Q2

REPORT INFORMATION
  Report Type: Spontaneous
  Country: US (occurrence: US)
  Receive Date: 20130605
  Receipt Date: 20130605
  Transmission Date: 20140414
  Serious: Yes (Other)
  Sender: FDA-Public Use
  Company Number: US-BAYER-2013-065970

PATIENT
  Age: 34 Year
  Sex: Female

DRUGS (7)
  1. BETASERON [Suspect]
     Dosage: 0.25 ML, QOD
     Route: 058
  2. BETASERON [Suspect]
     Dosage: 0.5 ML, QOD
     Route: 058
  3. BETASERON [Suspect]
     Dosage: 0.75 ML, QOD
     Route: 058
  4. BETASERON [Suspect]
     Dosage: 1 ML, QOD
     Route: 058
  5. NEURONTIN [Concomitant]
  6. BUPROPION [Concomitant]
  7. VITAMIN D [Concomitant]

REACTIONS (3)
  - Injection site cellulitis [Unknown]
  - Decreased appetite [Not Recovered/Not Resolved]
  - Weight decreased [Not Recovered/Not Resolved]
